FAERS Safety Report 5453885-4 (Version None)
Quarter: 2007Q3

REPORT INFORMATION
  Report Type: 
  Country: None (occurrence: None)
  Receive Date: 20070917
  Receipt Date: 20070914
  Transmission Date: 20080115
  Serious: Yes (Death, Hospitalization)
  Sender: FDA-Public Use
  Company Number: B0487064A

PATIENT
  Age: 70 Year
  Sex: Male

DRUGS (14)
  1. PAXIL [Suspect]
     Indication: DEPRESSION
     Dosage: 10MG PER DAY
     Route: 048
     Dates: start: 20070730, end: 20070731
  2. CLARITHROMYCIN [Concomitant]
     Route: 048
  3. MUCODYNE [Concomitant]
     Route: 048
  4. MUCOSOLVAN [Concomitant]
     Route: 048
  5. LANSOPRAZOLE [Concomitant]
     Route: 065
  6. FUROSEMIDE [Concomitant]
     Route: 065
  7. THEO-DUR [Concomitant]
     Route: 048
  8. ITRIZOLE [Concomitant]
     Route: 065
  9. ADONA (AC-17) [Concomitant]
     Route: 065
  10. TRANSAMIN [Concomitant]
     Route: 065
  11. LOSARTAN POTASSIUM [Concomitant]
     Route: 048
  12. ENSURE [Concomitant]
     Route: 048
  13. SENNOSIDE [Concomitant]
     Route: 048
  14. MEPTIN [Concomitant]
     Route: 055

REACTIONS (2)
  - ALTERED STATE OF CONSCIOUSNESS [None]
  - VOMITING [None]
